FAERS Safety Report 5293412-8 (Version None)
Quarter: 2007Q2

REPORT INFORMATION
  Report Type: 
  Country: None (occurrence: None)
  Receive Date: 20070411
  Receipt Date: 20070329
  Transmission Date: 20071010
  Serious: Yes (Other)
  Sender: FDA-Public Use
  Company Number: PL-ROCHE-492037

PATIENT
  Age: 46 Year

DRUGS (2)
  1. RIBAVIRIN [Suspect]
     Route: 065
  2. PEG-INTERFERON ALFA NOS [Suspect]
     Route: 065

REACTIONS (6)
  - COGNITIVE DISORDER [None]
  - DEMENTIA [None]
  - HALLUCINATION, AUDITORY [None]
  - PSYCHOTIC DISORDER [None]
  - SUICIDAL IDEATION [None]
  - TENSION [None]
